FAERS Safety Report 11427870 (Version 1)
Quarter: 2015Q3

REPORT INFORMATION
  Report Type: Spontaneous
  Country: CA (occurrence: CA)
  Receive Date: 20150828
  Receipt Date: 20150828
  Transmission Date: 20151125
  Serious: Yes (Other)
  Sender: FDA-Public Use
  Company Number: CA-PFIZER INC-2015275431

PATIENT
  Age: 13 Year
  Sex: Male

DRUGS (1)
  1. ADVIL [Suspect]
     Active Substance: IBUPROFEN
     Dosage: 200 MG, SINGLE
     Route: 048
     Dates: start: 20150813, end: 20150813

REACTIONS (2)
  - Odynophagia [Unknown]
  - Oesophageal injury [Unknown]

NARRATIVE: CASE EVENT DATE: 201508
